FAERS Safety Report 23871155 (Version 1)
Quarter: 2024Q2

REPORT INFORMATION
  Report Type: Report from Study
  Country: BR (occurrence: BR)
  Receive Date: 20240518
  Receipt Date: 20240518
  Transmission Date: 20240716
  Serious: Yes (Hospitalization, Other)
  Sender: FDA-Public Use
  Company Number: BR-AMGEN-BRASL2023130971

PATIENT
  Age: 55 Year
  Sex: Female

DRUGS (2)
  1. VECTIBIX [Suspect]
     Active Substance: PANITUMUMAB
     Indication: Colorectal cancer metastatic
     Dosage: UNK, Q2WK, CATHETER
     Route: 042
     Dates: start: 202210, end: 202403
  2. VECTIBIX [Suspect]
     Active Substance: PANITUMUMAB
     Indication: Rectosigmoid cancer

REACTIONS (18)
  - Prosthesis implantation [Recovering/Resolving]
  - Femur fracture [Recovering/Resolving]
  - Anaemia [Unknown]
  - Neuropathy peripheral [Recovered/Resolved]
  - Sensitive skin [Recovered/Resolved]
  - Feeling cold [Recovered/Resolved]
  - Pain [Recovering/Resolving]
  - Erythema [Recovering/Resolving]
  - Acne [Recovered/Resolved]
  - Pruritus [Recovering/Resolving]
  - Dry skin [Recovered/Resolved]
  - Inflammation [Recovering/Resolving]
  - Fall [Unknown]
  - Hypoaesthesia [Not Recovered/Not Resolved]
  - Eyelash changes [Unknown]
  - Paraesthesia [Unknown]
  - Flushing [Recovering/Resolving]
  - Fatigue [Unknown]

NARRATIVE: CASE EVENT DATE: 20230101
